FAERS Safety Report 26114011 (Version 1)
Quarter: 2025Q4

REPORT INFORMATION
  Report Type: Spontaneous
  Country: GB (occurrence: GB)
  Receive Date: 20251202
  Receipt Date: 20251202
  Transmission Date: 20260117
  Serious: Yes (Other)
  Sender: NOVO NORDISK
  Company Number: None

PATIENT
  Sex: Female

DRUGS (1)
  1. WEGOVY [Suspect]
     Active Substance: SEMAGLUTIDE
     Indication: Weight control
     Dosage: 0.25 MG, QW
     Dates: start: 20251029

REACTIONS (3)
  - Rectal haemorrhage [Not Recovered/Not Resolved]
  - Dyschezia [Not Recovered/Not Resolved]
  - Constipation [Not Recovered/Not Resolved]
